FAERS Safety Report 24927152 (Version 1)
Quarter: 2025Q1

REPORT INFORMATION
  Report Type: Spontaneous
  Country: EG (occurrence: EG)
  Receive Date: 20250205
  Receipt Date: 20250205
  Transmission Date: 20250409
  Serious: Yes (Other)
  Sender: HIKMA
  Company Number: EG-HIKMA PHARMACEUTICALS-EG-H14001-25-00975

PATIENT
  Age: 70 Year
  Sex: Female
  Weight: 62 kg

DRUGS (9)
  1. CARBOPLATIN [Suspect]
     Active Substance: CARBOPLATIN
     Indication: Breast cancer
     Dosage: 130 MILLIGRAM, WEEKLY
     Route: 065
  2. CARBOPLATIN [Suspect]
     Active Substance: CARBOPLATIN
     Dosage: 130 MILLIGRAM, WEEKLY
     Route: 065
     Dates: start: 20241207
  3. CARBOPLATIN [Suspect]
     Active Substance: CARBOPLATIN
     Dosage: 130 MILLIGRAM, WEEKLY, THIRD WEEK, FOURTH CYCLE
     Route: 065
     Dates: start: 20241214
  4. PACLITAXEL [Suspect]
     Active Substance: PACLITAXEL
     Indication: Breast cancer
     Route: 065
  5. PACLITAXEL [Suspect]
     Active Substance: PACLITAXEL
     Route: 065
     Dates: start: 20241207
  6. PACLITAXEL [Suspect]
     Active Substance: PACLITAXEL
     Route: 065
     Dates: start: 20241214
  7. DEXAMETHASONE [Concomitant]
     Active Substance: DEXAMETHASONE
     Indication: Chemotherapy side effect prophylaxis
     Route: 065
  8. ZOFATRONE [Concomitant]
     Indication: Chemotherapy side effect prophylaxis
     Route: 065
  9. ZOMEGIPRAL [Concomitant]
     Indication: Chemotherapy side effect prophylaxis
     Route: 065

REACTIONS (2)
  - Neuropathy peripheral [Not Recovered/Not Resolved]
  - Gait disturbance [Not Recovered/Not Resolved]

NARRATIVE: CASE EVENT DATE: 20241207
